FAERS Safety Report 9541467 (Version 1)
Quarter: 2013Q2

REPORT INFORMATION
  Report Type: Spontaneous
  Country: US (occurrence: None)
  Receive Date: 20130524
  Receipt Date: 20130524
  Transmission Date: 20140414
  Serious: No
  Sender: FDA-Public Use
  Company Number: PHEH2013US002351

PATIENT
  Sex: Female

DRUGS (2)
  1. GILENYA [Suspect]
     Dosage: 0.5 MG, DAILY, ORAL
     Route: 048
  2. VITAMIN D (ERGOCALCIFEROL) CAPSULE [Concomitant]

REACTIONS (3)
  - Chromaturia [None]
  - Dysgeusia [None]
  - Headache [None]
